FAERS Safety Report 4627466-6 (Version None)
Quarter: 2005Q1

REPORT INFORMATION
  Report Type: 
  Country: None (occurrence: None)
  Receive Date: 20050331
  Receipt Date: 20050323
  Transmission Date: 20050727
  Serious: Yes (Death)
  Sender: FDA-Public Use
  Company Number: HQWYE282023MAR05

PATIENT
  Age: 88 Year
  Sex: Male

DRUGS (1)
  1. ZURCALE                                   (PANTOPRAZOLE) [Suspect]
     Indication: GASTROOESOPHAGEAL REFLUX DISEASE
     Dosage: 40 MG 1X PER 1 DAY; ORAL
     Route: 048
     Dates: start: 20041009, end: 20040101

REACTIONS (1)
  - DEATH [None]
